FAERS Safety Report 5801354-1 (Version None)
Quarter: 2008Q3

REPORT INFORMATION
  Report Type: 
  Country: None (occurrence: None)
  Receive Date: 20080703
  Receipt Date: 20080703
  Transmission Date: 20090109
  Serious: Yes (Other)
  Sender: FDA-Public Use
  Company Number: None

PATIENT
  Age: 40 Year
  Sex: Female
  Weight: 99.3377 kg

DRUGS (11)
  1. RISPERDAL [Suspect]
     Indication: TOURETTE'S DISORDER
     Dosage: 1 A DAY DAILY ORALLY
     Route: 048
     Dates: start: 20080514, end: 20080520
  2. BUPROPION HCL [Concomitant]
  3. BENICAR HCT [Concomitant]
  4. CARVEDILOL [Concomitant]
  5. CLARINEX [Concomitant]
  6. SULFAMETHOXAZOLE + TRIMETHOPRIM [Concomitant]
  7. RANITIDINE HCL [Concomitant]
  8. ZEGERID [Concomitant]
  9. NASONEX [Concomitant]
  10. ASMANEX TWISTHALER [Concomitant]
  11. LORAZEPAM [Concomitant]

REACTIONS (4)
  - FATIGUE [None]
  - GAIT DISTURBANCE [None]
  - HYPOAESTHESIA [None]
  - PAIN IN EXTREMITY [None]
